FAERS Safety Report 8340980-5 (Version None)
Quarter: 2012Q2

REPORT INFORMATION
  Report Type: 
  Country: None (occurrence: None)
  Receive Date: 20120507
  Receipt Date: 20120503
  Transmission Date: 20120825
  Serious: Yes (Death, Congenital Anomaly)
  Sender: FDA-Public Use
  Company Number: US-ABBOTT-12P-163-0927038-00

PATIENT

DRUGS (1)
  1. NORVIR [Suspect]
     Indication: MATERNAL EXPOSURE TIMING UNSPECIFIED
     Route: 064

REACTIONS (5)
  - VERTICAL TALUS [None]
  - CYTOGENETIC ABNORMALITY [None]
  - ABORTION INDUCED [None]
  - BRAIN MALFORMATION [None]
  - SPINA BIFIDA [None]
